FAERS Safety Report 4653987-6 (Version None)
Quarter: 2005Q2

REPORT INFORMATION
  Report Type: 
  Country: None (occurrence: None)
  Receive Date: 20050504
  Receipt Date: 20050421
  Transmission Date: 20051028
  Serious: Yes (Hospitalization)
  Sender: FDA-Public Use
  Company Number: HQWYE188322APR05

PATIENT
  Age: 67 Month
  Sex: Male

DRUGS (3)
  1. AMIODARONE (AMIODARONE, TABLET) [Suspect]
     Indication: ATRIAL FLUTTER
     Dosage: 200 MG 1X PER 1 DAY
     Route: 048
     Dates: start: 20021101, end: 20030401
  2. AMIODARONE HCL [Concomitant]
  3. AMIODARONE HCL [Concomitant]

REACTIONS (8)
  - ARRHYTHMIA SUPRAVENTRICULAR [None]
  - ATRIAL FLUTTER [None]
  - ATRIOVENTRICULAR BLOCK COMPLETE [None]
  - DRUG INEFFECTIVE [None]
  - ELECTROCARDIOGRAM QRS COMPLEX PROLONGED [None]
  - MALAISE [None]
  - PALPITATIONS [None]
  - TACHYCARDIA [None]
